FAERS Safety Report 10377870 (Version 1)
Quarter: 2014Q3

REPORT INFORMATION
  Report Type: Spontaneous
  Country: FR (occurrence: FR)
  Receive Date: 20140812
  Receipt Date: 20140812
  Transmission Date: 20150326
  Serious: Yes (Life-Threatening, Hospitalization)
  Sender: FDA-Public Use
  Company Number: PHHY2014FR097872

PATIENT
  Age: 84 Year
  Sex: Female

DRUGS (13)
  1. SIMVASTATINE [Concomitant]
     Active Substance: SIMVASTATIN
     Dosage: UNK UKN, UNK
  2. DOLIPRANE [Concomitant]
     Active Substance: ACETAMINOPHEN
     Dosage: UNK UKN, UNK
  3. INEXIUM//ESOMEPRAZOLE MAGNESIUM [Concomitant]
     Active Substance: ESOMEPRAZOLE MAGNESIUM
     Dosage: UNK UKN, UNK
  4. CYMBALTA [Suspect]
     Active Substance: DULOXETINE HYDROCHLORIDE
     Dosage: 60 MG, QD
     Route: 048
     Dates: start: 20140526
  5. KARDEGIC [Concomitant]
     Active Substance: ASPIRIN LYSINE
     Dosage: UNK UKN, UNK
  6. GLICLAZIDE [Concomitant]
     Active Substance: GLICLAZIDE
     Dosage: UNK UKN, UNK
  7. DONEPEZIL [Suspect]
     Active Substance: DONEPEZIL
     Indication: DEMENTIA ALZHEIMER^S TYPE
     Dosage: 10 MG, QD
     Route: 048
     Dates: end: 20140526
  8. COAPROVEL [Concomitant]
     Active Substance: HYDROCHLOROTHIAZIDE\IRBESARTAN
     Dosage: UNK UKN, UNK
  9. ISOPHANE INSULIN [Concomitant]
     Active Substance: INSULIN NOS
     Dosage: UNK UKN, UNK
  10. OXYBUTYNIN [Suspect]
     Active Substance: OXYBUTYNIN
     Dosage: 1 DF, QD
     Route: 048
     Dates: start: 20140526
  11. RISPERDAL [Suspect]
     Active Substance: RISPERIDONE
     Dosage: 1 MG, QD
     Route: 048
     Dates: start: 20140526
  12. EUPRESSYL [Concomitant]
     Active Substance: URAPIDIL
     Dosage: UNK UKN, UNK
  13. EXELON [Suspect]
     Active Substance: RIVASTIGMINE TARTRATE
     Indication: DEMENTIA ALZHEIMER^S TYPE
     Dosage: 9.5 MG, QD
     Route: 062

REACTIONS (1)
  - Status epilepticus [Recovered/Resolved]

NARRATIVE: CASE EVENT DATE: 20140526
